FAERS Safety Report 6073074-2 (Version None)
Quarter: 2009Q1

REPORT INFORMATION
  Report Type: 
  Country: None (occurrence: None)
  Receive Date: 20090205
  Receipt Date: 20090122
  Transmission Date: 20090719
  Serious: Yes (Death)
  Sender: FDA-Public Use
  Company Number: A-JP2009-23564

PATIENT
  Age: 69 Year
  Sex: Male

DRUGS (3)
  1. TRACLEER [Suspect]
     Indication: PULMONARY HYPERTENSION
     Dosage: 62.5 MG, BID, ORAL
     Route: 048
     Dates: start: 20081201, end: 20090101
  2. WARFARIN SODIUM [Concomitant]
  3. TIPEPIDINE HIBENZATE (TIPEPIDINE HIBENZATE) [Concomitant]

REACTIONS (4)
  - CONDITION AGGRAVATED [None]
  - OFF LABEL USE [None]
  - PULMONARY ARTERIAL HYPERTENSION [None]
  - RIGHT VENTRICULAR SYSTOLIC PRESSURE INCREASED [None]
